FAERS Safety Report 6405278-0 (Version None)
Quarter: 2009Q4

REPORT INFORMATION
  Report Type: 
  Country: None (occurrence: None)
  Receive Date: 20091014
  Receipt Date: 20090930
  Transmission Date: 20100525
  Serious: Yes (Death, Hospitalization, Other)
  Sender: FDA-Public Use
  Company Number: 2009AC000049

PATIENT
  Sex: Male

DRUGS (17)
  1. DIGOXIN [Suspect]
     Dosage: 0.25 MG; QD; PO
     Route: 048
  2. ALTACE [Concomitant]
  3. AUGMENTIN [Concomitant]
  4. ASPIRIN [Concomitant]
  5. BACTROBAN [Concomitant]
  6. GLUCOTROL [Concomitant]
  7. IMDUR [Concomitant]
  8. TOPROL-XL [Concomitant]
  9. NEXIUM [Concomitant]
  10. XALATAN [Concomitant]
  11. NITROGLYCERIN [Concomitant]
  12. NORCO [Concomitant]
  13. LASIX [Concomitant]
  14. COUMADIN [Concomitant]
  15. PRAVACHOL [Concomitant]
  16. K-DUR [Concomitant]
  17. LEXAPRO [Concomitant]

REACTIONS (24)
  - ANGINA PECTORIS [None]
  - ANHEDONIA [None]
  - ANXIETY [None]
  - ARRHYTHMIA [None]
  - CARDIAC FAILURE CHRONIC [None]
  - CARDIAC FAILURE CONGESTIVE [None]
  - CARDIAC VALVE DISEASE [None]
  - CHEST PAIN [None]
  - DEFORMITY [None]
  - DIZZINESS [None]
  - DYSPEPSIA [None]
  - DYSPNOEA [None]
  - ECONOMIC PROBLEM [None]
  - LUNG NEOPLASM MALIGNANT [None]
  - MITRAL VALVE INCOMPETENCE [None]
  - MULTIPLE INJURIES [None]
  - NAUSEA [None]
  - PAIN [None]
  - PARTNER STRESS [None]
  - PNEUMONIA [None]
  - SOCIAL PROBLEM [None]
  - SUDDEN DEATH [None]
  - THERAPEUTIC AGENT TOXICITY [None]
  - WEIGHT DECREASED [None]
